FAERS Safety Report 25857088 (Version 1)
Quarter: 2025Q3

REPORT INFORMATION
  Report Type: Spontaneous
  Country: GB (occurrence: GB)
  Receive Date: 20250929
  Receipt Date: 20250929
  Transmission Date: 20251021
  Serious: Yes (Other)
  Sender: AMGEN
  Company Number: None

PATIENT
  Sex: Female

DRUGS (1)
  1. ARANESP [Suspect]
     Active Substance: DARBEPOETIN ALFA
     Indication: Nephrogenic anaemia
     Route: 065

REACTIONS (2)
  - Contusion [Unknown]
  - Fatigue [Unknown]

NARRATIVE: CASE EVENT DATE: 20250919
